FAERS Safety Report 21665855 (Version 7)
Quarter: 2025Q3

REPORT INFORMATION
  Report Type: Spontaneous
  Country: US (occurrence: US)
  Receive Date: 20221201
  Receipt Date: 20250807
  Transmission Date: 20251021
  Serious: No
  Sender: SANOFI AVENTIS
  Company Number: US-SA-SAC20221130000229

PATIENT
  Age: 14 Year
  Sex: Female
  Weight: 58.18 kg

DRUGS (1)
  1. DUPIXENT [Suspect]
     Active Substance: DUPILUMAB
     Indication: Dermatitis atopic
     Dosage: 200 MG, QOW
     Route: 058
     Dates: start: 20220104

REACTIONS (11)
  - Head discomfort [Unknown]
  - Photosensitivity reaction [Unknown]
  - Illness [Unknown]
  - Product dose omission issue [Unknown]
  - Dizziness [Unknown]
  - Vision blurred [Recovered/Resolved]
  - Pruritus [Unknown]
  - Pruritus [Unknown]
  - Eczema [Unknown]
  - Rash macular [Unknown]
  - Dermatitis atopic [Unknown]

NARRATIVE: CASE EVENT DATE: 20220101
